FAERS Safety Report 7111047-9 (Version None)
Quarter: 2010Q4

REPORT INFORMATION
  Report Type: 
  Country: None (occurrence: None)
  Receive Date: 20101118
  Receipt Date: 20101116
  Transmission Date: 20110411
  Serious: Yes (Death, Hospitalization)
  Sender: FDA-Public Use
  Company Number: DE-NAPPMUNDI-DEU-2010-0006524

PATIENT
  Age: 71 Year
  Sex: Female

DRUGS (4)
  1. MST 10 MG MUNDIPHARMA [Suspect]
     Indication: PAIN
     Dosage: 10 MG, BID
     Route: 048
     Dates: start: 20100101
  2. MST 10 MG MUNDIPHARMA [Interacting]
     Dosage: 10 MG, QID
     Route: 048
     Dates: start: 20100301, end: 20100101
  3. ANTIDEPRESSANTS [Interacting]
  4. MAO INHIBITORS [Concomitant]

REACTIONS (5)
  - DEATH [None]
  - DEPRESSED LEVEL OF CONSCIOUSNESS [None]
  - DIARRHOEA [None]
  - DRUG INTERACTION [None]
  - PAIN [None]
